FAERS Safety Report 12928162 (Version 1)
Quarter: 2016Q4

REPORT INFORMATION
  Report Type: Spontaneous
  Country: US (occurrence: US)
  Receive Date: 20161110
  Receipt Date: 20161110
  Transmission Date: 20170207
  Serious: No
  Sender: FDA-Public Use
  Company Number: None

PATIENT

DRUGS (2)
  1. NOVOLIN R [Suspect]
     Active Substance: INSULIN HUMAN
  2. NOVOLIN N [Suspect]
     Active Substance: INSULIN HUMAN

REACTIONS (3)
  - Blood glucose increased [None]
  - Intercepted product selection error [None]
  - Incorrect product storage [None]
